FAERS Safety Report 24415975 (Version 2)
Quarter: 2025Q1

REPORT INFORMATION
  Report Type: Spontaneous
  Country: PT (occurrence: PT)
  Receive Date: 20241009
  Receipt Date: 20250110
  Transmission Date: 20250409
  Serious: Yes (Other)
  Sender: AUROBINDO
  Company Number: PT-009507513-2409PRT002110

PATIENT
  Age: 48 Year
  Sex: Female

DRUGS (11)
  1. CARBOPLATIN [Suspect]
     Active Substance: CARBOPLATIN
     Indication: Triple negative breast cancer
     Route: 065
  2. EPIRUBICIN [Suspect]
     Active Substance: EPIRUBICIN
     Indication: Triple negative breast cancer
     Route: 065
  3. PACLITAXEL [Suspect]
     Active Substance: PACLITAXEL
     Indication: Triple negative breast cancer
     Route: 065
  4. CYCLOPHOSPHAMIDE [Suspect]
     Active Substance: CYCLOPHOSPHAMIDE
     Indication: Triple negative breast cancer
     Route: 065
  5. KEYTRUDA [Suspect]
     Active Substance: PEMBROLIZUMAB
     Indication: Triple negative breast cancer
     Route: 065
     Dates: start: 20240118, end: 20240118
  6. KEYTRUDA [Suspect]
     Active Substance: PEMBROLIZUMAB
     Route: 065
     Dates: start: 20240209, end: 20240209
  7. KEYTRUDA [Suspect]
     Active Substance: PEMBROLIZUMAB
     Route: 065
     Dates: start: 20240321, end: 20240321
  8. KEYTRUDA [Suspect]
     Active Substance: PEMBROLIZUMAB
     Route: 065
     Dates: start: 20240411, end: 20240411
  9. KEYTRUDA [Suspect]
     Active Substance: PEMBROLIZUMAB
     Route: 065
     Dates: start: 20240502, end: 20240502
  10. KEYTRUDA [Suspect]
     Active Substance: PEMBROLIZUMAB
     Route: 065
     Dates: start: 20240523, end: 20240523
  11. KEYTRUDA [Suspect]
     Active Substance: PEMBROLIZUMAB
     Route: 065
     Dates: start: 20240614, end: 20240614

REACTIONS (6)
  - Myocardial oedema [Unknown]
  - Myocarditis [Recovering/Resolving]
  - Rosacea [Unknown]
  - Alanine aminotransferase increased [Unknown]
  - Adverse drug reaction [Unknown]
  - Inappropriate schedule of product administration [Unknown]

NARRATIVE: CASE EVENT DATE: 20240101
